FAERS Safety Report 16277812 (Version 3)
Quarter: 2020Q2

REPORT INFORMATION
  Report Type: Spontaneous
  Country: DE (occurrence: DE)
  Receive Date: 20190506
  Receipt Date: 20200413
  Transmission Date: 20200713
  Serious: Yes (Hospitalization, Other)
  Sender: FDA-Public Use
  Company Number: DE-ELI_LILLY_AND_COMPANY-DE201904015980

PATIENT
  Age: 67 Year
  Sex: Male

DRUGS (7)
  1. FOLIC ACID. [Suspect]
     Active Substance: FOLIC ACID
     Indication: PRODUCT USED FOR UNKNOWN INDICATION
     Dosage: 5 MG, WEEKLY (1/W)
     Route: 065
  2. FOLSAEURE [Suspect]
     Active Substance: FOLIC ACID
     Indication: PRODUCT USED FOR UNKNOWN INDICATION
     Dosage: 5 MG, WEEKLY (1/W)
     Route: 065
  3. INSULIN HUMAN [Suspect]
     Active Substance: INSULIN HUMAN
     Indication: DIABETES MELLITUS MANAGEMENT
     Dosage: DOSED AFTER BLOOD SUGAR LEVEL , UNKNOWN
     Route: 065
  4. METHOTREXATE. [Suspect]
     Active Substance: METHOTREXATE
     Indication: PSORIASIS
     Dosage: 12.5 MG, WEEKLY (1/W)
     Route: 065
     Dates: start: 201503
  5. ASPIRIN. [Suspect]
     Active Substance: ASPIRIN
     Indication: PRODUCT USED FOR UNKNOWN INDICATION
     Dosage: 100 MG, DAILY
     Route: 065
  6. LANTUS [Suspect]
     Active Substance: INSULIN GLARGINE
     Indication: DIABETES MELLITUS MANAGEMENT
     Dosage: DOSED AFTER BLOOD SUGAR LEVEL, UNKNOWN
     Route: 065
  7. AMLODIPINE [Suspect]
     Active Substance: AMLODIPINE BESYLATE
     Indication: PRODUCT USED FOR UNKNOWN INDICATION
     Dosage: 10 MG, DAILY
     Route: 065

REACTIONS (1)
  - Leishmaniasis [Recovered/Resolved]
